FAERS Safety Report 13339852 (Version 5)
Quarter: 2017Q2

REPORT INFORMATION
  Report Type: Report from Study
  Country: CN (occurrence: CN)
  Receive Date: 20170315
  Receipt Date: 20170614
  Transmission Date: 20170830
  Serious: Yes (Hospitalization, Other)
  Sender: FDA-Public Use
  Company Number: CN-ROCHE-1853599

PATIENT
  Age: 53 Year
  Sex: Female
  Weight: 53 kg

DRUGS (2)
  1. AVASTIN [Suspect]
     Active Substance: BEVACIZUMAB
     Indication: COLON CANCER
     Route: 041
     Dates: start: 20160621
  2. AVASTIN [Suspect]
     Active Substance: BEVACIZUMAB
     Route: 041

REACTIONS (23)
  - Hepatic function abnormal [Unknown]
  - Drug intolerance [Unknown]
  - Vomiting [Unknown]
  - Blood creatinine increased [Unknown]
  - Blood creatinine increased [Unknown]
  - Platelet count decreased [Unknown]
  - Epistaxis [Unknown]
  - Feeding disorder [Unknown]
  - Protein urine present [Unknown]
  - Bone marrow disorder [Unknown]
  - Renal impairment [Recovering/Resolving]
  - Gastrointestinal disorder [Unknown]
  - Vomiting [Unknown]
  - Glomerular filtration rate decreased [Unknown]
  - Bone marrow failure [Unknown]
  - White blood cell count decreased [Unknown]
  - White blood cell count decreased [Unknown]
  - Anastomotic ulcer [Unknown]
  - Asthenia [Unknown]
  - Diarrhoea [Unknown]
  - Platelet count decreased [Unknown]
  - Pyrexia [Recovered/Resolved]
  - Blood urea increased [Unknown]

NARRATIVE: CASE EVENT DATE: 20161011
